FAERS Safety Report 10025787 (Version 2)
Quarter: 2014Q2

REPORT INFORMATION
  Report Type: Spontaneous
  Country: DE (occurrence: None)
  Receive Date: 20140314
  Receipt Date: 20140402
  Transmission Date: 20141212
  Serious: Yes (Hospitalization)
  Sender: FDA-Public Use
  Company Number: AUR-APL-2014-02641

PATIENT
  Age: 22 Year
  Sex: Male

DRUGS (3)
  1. SERTRALINE [Suspect]
     Indication: PRODUCT USED FOR UNKNOWN INDICATION
     Dosage: (50 MG,1 D)
     Dates: start: 2012, end: 2012
  2. CITALOPRAM [Suspect]
     Indication: PRODUCT USED FOR UNKNOWN INDICATION
     Dosage: 20 MG, 1 D), UNKNOWN
     Dates: start: 2012, end: 2012
  3. MIRTAZAPINE (MIRTAZAPINE) [Concomitant]

REACTIONS (4)
  - Psychotic disorder [None]
  - Hallucination, auditory [None]
  - Hallucination, visual [None]
  - Persecutory delusion [None]
